FAERS Safety Report 7720782-0 (Version None)
Quarter: 2011Q3

REPORT INFORMATION
  Report Type: 
  Country: None (occurrence: None)
  Receive Date: 20110831
  Receipt Date: 20110823
  Transmission Date: 20111222
  Serious: Yes (Hospitalization, Other)
  Sender: FDA-Public Use
  Company Number: GB-JNJFOC-20040405472

PATIENT
  Sex: Female

DRUGS (5)
  1. METHOTREXATE [Concomitant]
  2. FOLIC ACID [Concomitant]
  3. REMICADE [Suspect]
     Indication: RHEUMATOID ARTHRITIS
     Route: 042
     Dates: start: 20020904, end: 20030401
  4. ALENDRONATE SODIUM [Concomitant]
  5. PREDNISOLONE [Concomitant]

REACTIONS (3)
  - DECREASED APPETITE [None]
  - LYMPH NODE TUBERCULOSIS [None]
  - LETHARGY [None]
